FAERS Safety Report 9701658 (Version 1)
Quarter: 2013Q4

REPORT INFORMATION
  Report Type: Spontaneous
  Country: US (occurrence: US)
  Receive Date: 20131119
  Receipt Date: 20131119
  Transmission Date: 20140711
  Serious: Yes (Life-Threatening)
  Sender: FDA-Public Use
  Company Number: US-ORACLE-2012S1000002

PATIENT
  Age: 56 Year
  Sex: Male
  Weight: 72.58 kg

DRUGS (9)
  1. KRYSTEXXA INJECTION [Suspect]
     Indication: GOUT
     Route: 042
     Dates: start: 20110914, end: 20110914
  2. KRYSTEXXA INJECTION [Suspect]
     Indication: GOUT
     Route: 042
     Dates: start: 20110927, end: 20110927
  3. KRYSTEXXA INJECTION [Suspect]
     Indication: GOUT
     Route: 042
     Dates: start: 20111012, end: 20111012
  4. KRYSTEXXA INJECTION [Suspect]
     Indication: GOUT
     Route: 042
     Dates: start: 20111026, end: 20111026
  5. COLCHICINE [Concomitant]
     Indication: PREMEDICATION
  6. FEXOFENADINE [Concomitant]
     Indication: PREMEDICATION
  7. SOLUCORTEF [Concomitant]
     Indication: PREMEDICATION
  8. PREDNISONE [Concomitant]
     Indication: PREMEDICATION
  9. PROTONIX [Concomitant]
     Indication: PRODUCT USED FOR UNKNOWN INDICATION

REACTIONS (2)
  - Infusion related reaction [Recovered/Resolved]
  - Therapeutic response decreased [Unknown]
